FAERS Safety Report 4309494-3 (Version None)
Quarter: 2004Q1

REPORT INFORMATION
  Report Type: 
  Country: None (occurrence: None)
  Receive Date: 20040227
  Receipt Date: 20021205
  Transmission Date: 20041129
  Serious: Yes (Hospitalization, Other)
  Sender: FDA-Public Use
  Company Number: PHNU2002DE04090

PATIENT
  Age: 81 Year
  Sex: Female
  Weight: 71 kg

DRUGS (10)
  1. FUROSEMIDE [Concomitant]
     Dosage: 40 MG, QD
     Route: 048
  2. ACETYLSALICYLIC ACID [Concomitant]
     Dosage: 100 MG, QD
     Route: 048
  3. ZOCOR [Concomitant]
     Dosage: 10 MG, QD
     Route: 048
  4. ACE INHIBITOR NOS [Concomitant]
     Dosage: 25 MG, TID
     Route: 048
  5. MOLSIDOMIN ^HEUMANN^ [Concomitant]
     Dosage: 8 MG, BID
     Route: 048
  6. METOPROLOL [Concomitant]
     Dosage: 50 MG, QD
     Route: 048
  7. ZOMETA [Suspect]
     Indication: BREAST CANCER METASTATIC
     Dosage: 4 MG, TIW
     Route: 042
     Dates: start: 20020801, end: 20021201
  8. FEMARA [Concomitant]
     Indication: BREAST CANCER METASTATIC
     Dosage: 2.5 MG, QD
     Route: 048
     Dates: start: 20020701
  9. TRIAMETERENE AND HYDROCHLOROTHIAZIDE [Concomitant]
     Route: 048
  10. IBUPROFEN [Concomitant]
     Indication: PAIN
     Dosage: 300MG, PRN
     Route: 048
     Dates: start: 20020701, end: 20020901

REACTIONS (16)
  - BIOPSY KIDNEY ABNORMAL [None]
  - BLOOD CREATININE INCREASED [None]
  - BLOOD UREA INCREASED [None]
  - CREATININE RENAL CLEARANCE DECREASED [None]
  - HYPERTENSION [None]
  - KIDNEY SMALL [None]
  - NEPHROSCLEROSIS [None]
  - OEDEMA [None]
  - RENAL ATROPHY [None]
  - RENAL DISORDER [None]
  - RENAL FAILURE [None]
  - RENAL FAILURE ACUTE [None]
  - RENAL INTERSTITIAL FIBROSIS [None]
  - RENAL TUBULAR DISORDER [None]
  - ULTRASOUND KIDNEY ABNORMAL [None]
  - URINARY SEDIMENT ABNORMAL [None]
